FAERS Safety Report 7419843-5 (Version None)
Quarter: 2011Q2

REPORT INFORMATION
  Report Type: 
  Country: None (occurrence: None)
  Receive Date: 20110413
  Receipt Date: 20110413
  Transmission Date: 20111010
  Serious: No
  Sender: FDA-Public Use
  Company Number: None

PATIENT
  Sex: Female
  Weight: 77.1115 kg

DRUGS (1)
  1. ARIMIDEX [Suspect]
     Indication: BREAST CANCER
     Dates: start: 20070701, end: 20071001

REACTIONS (7)
  - RHEUMATOID ARTHRITIS [None]
  - SUICIDAL IDEATION [None]
  - INSOMNIA [None]
  - ABASIA [None]
  - MENTAL DISORDER [None]
  - DYSSTASIA [None]
  - IMMOBILE [None]
